FAERS Safety Report 6238961-0 (Version None)
Quarter: 2009Q2

REPORT INFORMATION
  Report Type: 
  Country: None (occurrence: None)
  Receive Date: 20090622
  Receipt Date: 20090609
  Transmission Date: 20091009
  Serious: Yes (Hospitalization)
  Sender: FDA-Public Use
  Company Number: PHHY2009BR17668

PATIENT
  Sex: Female
  Weight: 66.5 kg

DRUGS (4)
  1. FEMARA [Suspect]
     Indication: BREAST CANCER
     Dosage: 2.5 MG DAILY
     Route: 048
  2. ALENDRONATO SODICO [Concomitant]
     Indication: OSTEOPOROSIS
     Dosage: 70 MG ONCE A WEEK
     Route: 048
  3. CALCIUM [Concomitant]
     Indication: OSTEOPOROSIS
     Dosage: UNK
     Route: 048
  4. HOMEOPATIC PREPARATION [Concomitant]
     Indication: EYE ALLERGY
     Dosage: UNK
     Route: 048

REACTIONS (14)
  - CONJUNCTIVITIS [None]
  - CYSTOCELE REPAIR [None]
  - EYE IRRITATION [None]
  - EYELID EXFOLIATION [None]
  - EYELIDS PRURITUS [None]
  - HEADACHE [None]
  - HOT FLUSH [None]
  - HYSTERECTOMY [None]
  - LIP DRY [None]
  - MUCOSAL DRYNESS [None]
  - MUSCLE SPASMS [None]
  - NAUSEA [None]
  - OOPHORECTOMY [None]
  - VULVOVAGINAL DRYNESS [None]
